FAERS Safety Report 21172969 (Version 2)
Quarter: 2024Q3

REPORT INFORMATION
  Report Type: Spontaneous
  Country: US (occurrence: US)
  Receive Date: 20220804
  Receipt Date: 20240715
  Transmission Date: 20241017
  Serious: Yes (Hospitalization, Disabling, Other)
  Sender: BIOMARIN
  Company Number: US-SA-SAC20220720001197

PATIENT

DRUGS (2)
  1. LARONIDASE [Suspect]
     Active Substance: LARONIDASE
     Indication: Mucopolysaccharidosis I
     Dosage: 20.3 (UNITS NOT PROVIDED), QW
     Route: 042
     Dates: start: 20170523
  2. LARONIDASE [Suspect]
     Active Substance: LARONIDASE
     Dosage: 20.3 (UNITS NOT REPORTED), QW
     Route: 042
     Dates: start: 20050411

REACTIONS (7)
  - Pneumonia [Unknown]
  - Walking aid user [Not Recovered/Not Resolved]
  - Pneumonia [Unknown]
  - Pulmonary oedema [Unknown]
  - Hospitalisation [Recovering/Resolving]
  - Dental caries [Unknown]
  - Toothache [Unknown]

NARRATIVE: CASE EVENT DATE: 20220621
